FAERS Safety Report 24711948 (Version 1)
Quarter: 2024Q4

REPORT INFORMATION
  Report Type: Spontaneous
  Country: FR (occurrence: FR)
  Receive Date: 20241209
  Receipt Date: 20241209
  Transmission Date: 20250115
  Serious: Yes (Hospitalization)
  Sender: B BRAUN
  Company Number: FR-B.Braun Medical Inc.-2166747

PATIENT
  Age: 30 Year
  Sex: Female
  Weight: 62 kg

DRUGS (6)
  1. ACETAMINOPHEN [Suspect]
     Active Substance: ACETAMINOPHEN
     Indication: Analgesic therapy
  2. IBUPROFEN [Suspect]
     Active Substance: IBUPROFEN
  3. CEFAZOLIN [Suspect]
     Active Substance: CEFAZOLIN
  4. DEXAMETHASONE [Suspect]
     Active Substance: DEXAMETHASONE
  5. DROPERIDOL [Suspect]
     Active Substance: DROPERIDOL
  6. PHLOROGLUCINOL\1,3,5-TRIMETHOXYBENZENE [Suspect]
     Active Substance: PHLOROGLUCINOL\1,3,5-TRIMETHOXYBENZENE

REACTIONS (1)
  - Angioedema [Recovered/Resolved]
